FAERS Safety Report 5009012-0 (Version None)
Quarter: 2006Q2

REPORT INFORMATION
  Report Type: 
  Country: None (occurrence: None)
  Receive Date: 20060518
  Receipt Date: 20060508
  Transmission Date: 20061013
  Serious: No
  Sender: FDA-Public Use
  Company Number: 2006-142488-NL

PATIENT
  Age: 57 Year
  Sex: Male

DRUGS (4)
  1. DEXAMETHASONE TAB [Suspect]
     Indication: ALLOGENIC BONE MARROW TRANSPLANTATION THERAPY
     Dosage: 4 MG
  2. CYCLOSPORINE [Suspect]
     Indication: ALLOGENIC BONE MARROW TRANSPLANTATION THERAPY
     Dosage: 300 MG
  3. THALIDOMIDE [Suspect]
     Dosage: 100 MG
  4. CHEMOTHERAPEUTICS [Concomitant]

REACTIONS (10)
  - ACANTHOSIS [None]
  - ALANINE AMINOTRANSFERASE INCREASED [None]
  - BLOOD ALKALINE PHOSPHATASE INCREASED [None]
  - EPIDERMAL NECROSIS [None]
  - GRAFT VERSUS HOST DISEASE [None]
  - INFLAMMATION [None]
  - LICHEN PLANUS [None]
  - NODULE [None]
  - SOMNOLENCE [None]
  - SQUAMOUS CELL CARCINOMA OF SKIN [None]
